FAERS Safety Report 7753538-3 (Version None)
Quarter: 2011Q3

REPORT INFORMATION
  Report Type: 
  Country: None (occurrence: None)
  Receive Date: 20110915
  Receipt Date: 20110908
  Transmission Date: 20111222
  Serious: Yes (Other)
  Sender: FDA-Public Use
  Company Number: GB-JNJFOC-20100901320

PATIENT
  Age: 68 Year
  Sex: Female

DRUGS (7)
  1. LITHIUM CARBONATE [Interacting]
     Indication: DEPRESSION
     Route: 048
     Dates: start: 20100514, end: 20100606
  2. LITHIUM CARBONATE [Interacting]
     Route: 048
     Dates: start: 20100514, end: 20100606
  3. RISPERIDONE [Suspect]
     Indication: MAJOR DEPRESSION
     Route: 048
     Dates: start: 20090912, end: 20100610
  4. DIAZEPAM [Concomitant]
     Indication: ILL-DEFINED DISORDER
     Route: 065
  5. MIRTAZAPINE [Concomitant]
     Indication: ILL-DEFINED DISORDER
     Route: 065
  6. PERINDOPRIL ERBUMINE [Concomitant]
     Indication: ILL-DEFINED DISORDER
     Route: 065
  7. VENLAFAXINE HYDROCHLORIDE [Concomitant]
     Indication: ILL-DEFINED DISORDER
     Route: 065

REACTIONS (4)
  - COGWHEEL RIGIDITY [None]
  - TREMOR [None]
  - DRUG INTERACTION [None]
  - GAIT DISTURBANCE [None]
